FAERS Safety Report 6152631-9 (Version None)
Quarter: 2009Q2

REPORT INFORMATION
  Report Type: 
  Country: None (occurrence: None)
  Receive Date: 20090409
  Receipt Date: 20090331
  Transmission Date: 20091009
  Serious: Yes (Other)
  Sender: FDA-Public Use
  Company Number: GXKR2009US04091

PATIENT
  Age: 19 Month
  Sex: Male

DRUGS (8)
  1. ZIDOVUDINE [Suspect]
     Indication: ANTIRETROVIRAL THERAPY
  2. RIFAMPICIN [Suspect]
     Indication: PULMONARY TUBERCULOSIS
  3. ISONIAZID [Suspect]
     Indication: PULMONARY TUBERCULOSIS
  4. PYRAZINAMIDE [Suspect]
     Indication: PULMONARY TUBERCULOSIS
  5. STAVUDINE [Suspect]
     Indication: ANTIRETROVIRAL THERAPY
  6. LAMIVUDINE [Suspect]
     Indication: ANTIRETROVIRAL THERAPY
  7. RITONAVIR [Suspect]
     Indication: ANTIRETROVIRAL THERAPY
  8. LOPINAVIR W/RITONAVIR (LOPINAVIR, RITONAVIRA) [Suspect]

REACTIONS (8)
  - CD4 LYMPHOCYTES DECREASED [None]
  - DIARRHOEA [None]
  - DRUG RESISTANCE [None]
  - LYMPHADENOPATHY [None]
  - PULMONARY TUBERCULOSIS [None]
  - VOMITING [None]
  - WEIGHT DECREASED [None]
  - WEIGHT GAIN POOR [None]
